FAERS Safety Report 8057198-6 (Version None)
Quarter: 2012Q1

REPORT INFORMATION
  Report Type: 
  Country: None (occurrence: None)
  Receive Date: 20120119
  Receipt Date: 20120112
  Transmission Date: 20120608
  Serious: Yes (Hospitalization)
  Sender: FDA-Public Use
  Company Number: PHHY2012FR001203

PATIENT
  Age: 65 Year
  Sex: Female

DRUGS (1)
  1. ZOLEDRONOC ACID [Suspect]
     Indication: OSTEOPOROSIS
     Dosage: 5 MG, UNK
     Route: 042
     Dates: start: 20120102

REACTIONS (12)
  - EYE PAIN [None]
  - VITAMIN D DECREASED [None]
  - CONJUNCTIVITIS [None]
  - GASTROINTESTINAL DISORDER [None]
  - HYPERHIDROSIS [None]
  - CHILLS [None]
  - HYPOCALCAEMIA [None]
  - CHEST DISCOMFORT [None]
  - EYE INFLAMMATION [None]
  - VOMITING [None]
  - FATIGUE [None]
  - PYREXIA [None]
